FAERS Safety Report 5238132-0 (Version None)
Quarter: 2007Q1

REPORT INFORMATION
  Report Type: 
  Country: None (occurrence: None)
  Receive Date: 20070215
  Receipt Date: 20070205
  Transmission Date: 20070707
  Serious: Yes (Other)
  Sender: FDA-Public Use
  Company Number: PHHO2006JP14612

PATIENT
  Age: 80 Year
  Sex: Male

DRUGS (7)
  1. DIOVAN [Suspect]
     Indication: HYPERTENSION
     Dosage: 40 MG/DAILY
     Route: 048
     Dates: start: 20030508
  2. BUFFERIN [Concomitant]
     Indication: ANGINA PECTORIS
  3. LASIX [Concomitant]
     Indication: OEDEMA
  4. METOPROLOL TARTRATE [Concomitant]
     Indication: HYPERTENSION
  5. GASTER [Concomitant]
     Indication: GASTRIC ULCER
  6. BLOPRESS [Concomitant]
     Indication: HYPERTENSION
  7. CEROCRAL [Concomitant]
     Indication: HYPERTENSION

REACTIONS (1)
  - RENAL FAILURE CHRONIC [None]
